FAERS Safety Report 8979261 (Version 5)
Quarter: 2013Q2

REPORT INFORMATION
  Report Type: Report from Study
  Country: US (occurrence: US)
  Receive Date: 20121221
  Receipt Date: 20130510
  Transmission Date: 20140414
  Serious: Yes (Death, Hospitalization, Other)
  Sender: FDA-Public Use
  Company Number: US-ACTELION-A-NJ2012-76664

PATIENT
  Age: 72 Year
  Sex: Male
  Weight: 87.75 kg

DRUGS (11)
  1. VELETRI [Suspect]
     Indication: PULMONARY ARTERIAL HYPERTENSION
     Dosage: 52 NG/KG, PER MIN
     Route: 041
     Dates: start: 200903, end: 20121217
  2. LETAIRIS [Concomitant]
     Dosage: 5 MG, QD
     Route: 048
  3. COUMADIN [Concomitant]
     Dosage: 5 MG, QD
     Route: 048
  4. PLAVIX [Concomitant]
     Dosage: 75 MG, QD
     Route: 048
  5. DURAGESIC [Concomitant]
     Dosage: 50 MCG, Q2WEEK
     Route: 003
  6. THIOCTIC ACID [Concomitant]
     Dosage: 300 MG, QD
     Route: 048
  7. CHOLECALCIFEROL [Concomitant]
     Dosage: UNK
  8. COENZYME Q10 [Concomitant]
     Dosage: UNK
  9. FISH OIL [Concomitant]
     Dosage: UNK
  10. XANAX RETARD [Concomitant]
     Dosage: AS NEEDED
  11. DILAUDID [Concomitant]
     Dosage: AS NEEDED

REACTIONS (10)
  - Death [Fatal]
  - Pancreatic cyst [Unknown]
  - Pancreatic carcinoma [Unknown]
  - Diarrhoea [Unknown]
  - Mental status changes [Recovering/Resolving]
  - Sepsis [Recovered/Resolved]
  - Hypotension [Recovered/Resolved]
  - Pyrexia [Recovering/Resolving]
  - Depression [Unknown]
  - Decreased appetite [Unknown]
